FAERS Safety Report 18599435 (Version 3)
Quarter: 2021Q2

REPORT INFORMATION
  Report Type: Spontaneous
  Country: JP (occurrence: JP)
  Receive Date: 20201210
  Receipt Date: 20210614
  Transmission Date: 20210717
  Serious: Yes (Hospitalization)
  Sender: FDA-Public Use
  Company Number: JP-AMGEN-JPNSP2020200710

PATIENT
  Age: 64 Year
  Sex: Male
  Weight: 64 kg

DRUGS (12)
  1. OXAROL [Concomitant]
     Active Substance: MAXACALCITOL
     Dosage: 2.5 MICROGRAM,  Q56H
     Route: 010
     Dates: start: 20200127
  2. BUP?4 [Concomitant]
     Active Substance: PROPIVERINE
     Dosage: 10 MILLIGRAM, QD
     Route: 048
  3. ARTIST [Concomitant]
     Active Substance: CARVEDILOL
     Dosage: 10 MILLIGRAM, QD
     Route: 048
  4. EURODIN [ESTAZOLAM] [Concomitant]
     Active Substance: ESTAZOLAM
     Dosage: 1 DOSAGE FORM, QD
     Route: 048
     Dates: start: 20200522
  5. PARSABIV [Suspect]
     Active Substance: ETELCALCETIDE HYDROCHLORIDE
     Indication: HYPERPARATHYROIDISM SECONDARY
     Dosage: 2.5 MILLIGRAM, Q56H
     Route: 010
     Dates: start: 20200127, end: 20201106
  6. EPOGIN [Concomitant]
     Active Substance: ERYTHROPOIETIN
     Dosage: 1500 INTERNATIONAL UNIT, Q56H
     Route: 010
  7. TAKECAB [Concomitant]
     Active Substance: VONOPRAZAN FUMARATE
     Dosage: UNK
     Route: 065
  8. ALLEGRA [Concomitant]
     Active Substance: FEXOFENADINE HYDROCHLORIDE
     Dosage: 60 MILLIGRAM, QD
     Route: 048
  9. MYSLEE [Concomitant]
     Active Substance: ZOLPIDEM TARTRATE
     Dosage: 1 DOSAGE FORM, QD
     Route: 048
     Dates: start: 20200522
  10. SENNARIDE [Concomitant]
     Active Substance: SENNOSIDES A AND B
     Dosage: 4 DOSAGE FORM, QD
     Route: 048
  11. RENAGEL [Concomitant]
     Active Substance: SEVELAMER HYDROCHLORIDE
     Dosage: 500 MILLIGRAM, Q8H
     Route: 048
     Dates: start: 20200710
  12. AMITIZA [Concomitant]
     Active Substance: LUBIPROSTONE
     Dosage: 1 DOSAGE FORM, Q12H
     Route: 048
     Dates: start: 20200803

REACTIONS (5)
  - Abdominal discomfort [Recovered/Resolved]
  - Weight decreased [Recovered/Resolved]
  - Headache [Recovering/Resolving]
  - Decreased appetite [Recovered/Resolved]
  - Alopecia areata [Recovering/Resolving]

NARRATIVE: CASE EVENT DATE: 202004
